FAERS Safety Report 6800655-8 (Version None)
Quarter: 2010Q2

REPORT INFORMATION
  Report Type: 
  Country: None (occurrence: None)
  Receive Date: 20100625
  Receipt Date: 20100625
  Transmission Date: 20101027
  Serious: No
  Sender: FDA-Public Use
  Company Number: None

PATIENT
  Age: 64 Year
  Sex: Female
  Weight: 72.5755 kg

DRUGS (1)
  1. PSEUDOEPHEDRINE HCL [Suspect]
     Dosage: 1/2 PILL ONCE TODAY
     Dates: start: 20100624, end: 20100624

REACTIONS (4)
  - FEELING JITTERY [None]
  - HYPERSOMNIA [None]
  - IRRITABILITY [None]
  - PRODUCT SUBSTITUTION ISSUE [None]
